FAERS Safety Report 6711119-4 (Version None)
Quarter: 2010Q2

REPORT INFORMATION
  Report Type: 
  Country: None (occurrence: None)
  Receive Date: 20100505
  Receipt Date: 20100422
  Transmission Date: 20101027
  Serious: Yes (Hospitalization, Other)
  Sender: FDA-Public Use
  Company Number: PHHY2010DE26511

PATIENT
  Age: 71 Year
  Sex: Female
  Weight: 82 kg

DRUGS (7)
  1. HYDROCHLOROTHIAZIDE [Suspect]
     Indication: HYPERTENSION
     Dosage: 12.5 MG
     Route: 048
     Dates: start: 20060101
  2. SIMVAHEXAL [Interacting]
     Indication: CORONARY ARTERY DISEASE
     Dosage: 40 MG
     Route: 048
     Dates: start: 20081207, end: 20090106
  3. METOHEXAL [Concomitant]
     Indication: HYPERTENSION
     Dosage: UNK
     Route: 048
     Dates: start: 20081201
  4. CITALOPRAM HYDROBROMIDE [Concomitant]
     Indication: DEPRESSION
     Dosage: 10 MG
     Route: 048
  5. ACCUPRO [Concomitant]
     Indication: HYPERTENSION
     Dosage: 10 MG
     Route: 048
     Dates: start: 20060101
  6. ISCOVER [Concomitant]
     Indication: ACUTE MYOCARDIAL INFARCTION
     Dosage: 75 MG
     Route: 048
     Dates: start: 20081207
  7. ASS ^CT-ARZNEIMITTEL^ [Concomitant]
     Indication: CORONARY ARTERY DISEASE
     Dosage: UNK
     Route: 048
     Dates: start: 20081207

REACTIONS (3)
  - CHEST PAIN [None]
  - DRUG INTERACTION [None]
  - RHABDOMYOLYSIS [None]
